FAERS Safety Report 7693778-5 (Version None)
Quarter: 2011Q3

REPORT INFORMATION
  Report Type: 
  Country: None (occurrence: None)
  Receive Date: 20110819
  Receipt Date: 20110630
  Transmission Date: 20111222
  Serious: No
  Sender: FDA-Public Use
  Company Number: US-ALLERGAN-1108983US

PATIENT
  Age: 54 Year
  Sex: Female

DRUGS (1)
  1. LASTACAFT [Suspect]
     Indication: ECZEMA EYELIDS
     Dosage: 2 GTT, QD
     Route: 047

REACTIONS (3)
  - OCULAR HYPERAEMIA [None]
  - SECRETION DISCHARGE [None]
  - EYE IRRITATION [None]
